FAERS Safety Report 6771650-2 (Version None)
Quarter: 2010Q2

REPORT INFORMATION
  Report Type: 
  Country: None (occurrence: None)
  Receive Date: 20100611
  Receipt Date: 20100607
  Transmission Date: 20101027
  Serious: Yes (Death, Other)
  Sender: FDA-Public Use
  Company Number: 2010SP018731

PATIENT
  Age: 76 Year
  Sex: Male
  Weight: 58 kg

DRUGS (8)
  1. ESLAX (ROCURONIUM BROMIDE /01245702/) [Suspect]
     Indication: NEUROMUSCULAR BLOCKING THERAPY
     Dosage: 50 MG;ONCE;INBO; 15 MG;QH;INDRP; 25 MG;QH;INDRP; 20 MG;QH;INDRP; 10 MG;QH;INDRP
     Route: 040
     Dates: start: 20100325, end: 20100325
  2. SEVOFLURANE [Concomitant]
  3. FENTANYL [Concomitant]
  4. DIPRIVAN [Concomitant]
  5. LACTEC [Concomitant]
  6. ALBUMIN (HUMAN) [Concomitant]
  7. RED BLOOD CELLS [Concomitant]
  8. FREZH FROZEN PLASMA [Concomitant]

REACTIONS (8)
  - DRUG INEFFECTIVE [None]
  - GASTROINTESTINAL OEDEMA [None]
  - HEPATIC NEOPLASM MALIGNANT [None]
  - MALIGNANT NEOPLASM PROGRESSION [None]
  - MUSCLE RIGIDITY [None]
  - OPERATIVE HAEMORRHAGE [None]
  - PROCEDURAL COMPLICATION [None]
  - THERAPEUTIC RESPONSE DECREASED [None]
